FAERS Safety Report 23614096 (Version 2)
Quarter: 2024Q2

REPORT INFORMATION
  Report Type: Report from Study
  Country: US (occurrence: US)
  Receive Date: 20240310
  Receipt Date: 20240405
  Transmission Date: 20240716
  Serious: Yes (Hospitalization, Other)
  Sender: FDA-Public Use
  Company Number: US-ABBVIE-5395773

PATIENT
  Sex: Female

DRUGS (4)
  1. HUMIRA [Suspect]
     Active Substance: ADALIMUMAB
     Indication: Psoriasis
     Dosage: FORM STRENGTH WAS 40 MILLIGRAM
     Route: 058
  2. HUMIRA [Suspect]
     Active Substance: ADALIMUMAB
     Dosage: FORM STRENGTH WAS 40 MILLIGRAM?CITRATE FREE
     Route: 058
     Dates: start: 20220419
  3. HUMIRA [Suspect]
     Active Substance: ADALIMUMAB
     Dosage: FORM STRENGTH: 40 MG
     Route: 058
  4. INSULIN NOS [Concomitant]
     Active Substance: INSULIN NOS
     Indication: Product used for unknown indication
     Dosage: DECREASED?40 UNITS ONCE

REACTIONS (26)
  - Eye prosthesis insertion [Unknown]
  - Respiratory tract infection [Not Recovered/Not Resolved]
  - Weight decreased [Recovering/Resolving]
  - Psoriasis [Recovered/Resolved]
  - Dry skin [Not Recovered/Not Resolved]
  - Glycosylated haemoglobin decreased [Recovering/Resolving]
  - Psoriasis [Recovering/Resolving]
  - Dry mouth [Not Recovered/Not Resolved]
  - Lacrimation increased [Not Recovered/Not Resolved]
  - Sinus congestion [Not Recovered/Not Resolved]
  - Dry skin [Recovered/Resolved]
  - Mouth breathing [Not Recovered/Not Resolved]
  - Therapeutic response shortened [Unknown]
  - Allergy to arthropod bite [Not Recovered/Not Resolved]
  - Blood glucose decreased [Recovering/Resolving]
  - Fatigue [Not Recovered/Not Resolved]
  - Eyelid exfoliation [Unknown]
  - Hypoaesthesia oral [Unknown]
  - Unevaluable event [Unknown]
  - Enuresis [Unknown]
  - Abnormal behaviour [Unknown]
  - Rash papular [Unknown]
  - Infected bite [Unknown]
  - Diarrhoea [Unknown]
  - Memory impairment [Recovering/Resolving]
  - Nausea [Unknown]

NARRATIVE: CASE EVENT DATE: 20230101
